FAERS Safety Report 5993715-5 (Version None)
Quarter: 2008Q4

REPORT INFORMATION
  Report Type: 
  Country: None (occurrence: None)
  Receive Date: 20081204
  Receipt Date: 20070302
  Transmission Date: 20090506
  Serious: Yes (Other)
  Sender: FDA-Public Use
  Company Number: THYM-11340

PATIENT

DRUGS (1)
  1. THYMOGLOBULIN [Suspect]
     Indication: RENAL TRANSPLANT
     Dosage: QD, INTRAVENOUS
     Route: 042
     Dates: start: 20070201

REACTIONS (1)
  - ANAPHYLACTIC REACTION [None]
